FAERS Safety Report 19327872 (Version 1)
Quarter: 2021Q2

REPORT INFORMATION
  Report Type: Spontaneous
  Country: US (occurrence: US)
  Receive Date: 20210528
  Receipt Date: 20210528
  Transmission Date: 20210717
  Serious: Yes (Life-Threatening, Hospitalization, Other)
  Sender: FDA-Public Use
  Company Number: US-SA-2021SA139864

PATIENT
  Age: 2 Year
  Sex: Male
  Weight: 9.8 kg

DRUGS (3)
  1. LUMIZYME [Suspect]
     Active Substance: ALGLUCOSIDASE ALFA
  2. PROPRANOLOL [Concomitant]
     Active Substance: PROPRANOLOL HYDROCHLORIDE
     Indication: SUPRAVENTRICULAR TACHYCARDIA
     Dosage: UNK
  3. SODIUM CHLORIDE. [Concomitant]
     Active Substance: SODIUM CHLORIDE
     Indication: SUPPLEMENTATION THERAPY

REACTIONS (7)
  - Serratia infection [Unknown]
  - Hyponatraemia [Unknown]
  - Blood bicarbonate increased [Unknown]
  - Enterovirus infection [Recovering/Resolving]
  - Rhinovirus infection [Recovering/Resolving]
  - Tracheitis [Unknown]
  - Respiratory distress [Recovering/Resolving]
